FAERS Safety Report 4397625-9 (Version None)
Quarter: 2004Q3

REPORT INFORMATION
  Report Type: 
  Country: None (occurrence: None)
  Receive Date: 20040714
  Receipt Date: 20040630
  Transmission Date: 20050211
  Serious: Yes (Death)
  Sender: FDA-Public Use
  Company Number: 2004S1001913

PATIENT
  Age: 29 Year
  Sex: Male

DRUGS (2)
  1. CLOZAPINE [Suspect]
     Indication: SCHIZOPHRENIA
     Dosage: 100MG QAM, 350MG Q HS ORAL
     Route: 048
     Dates: end: 20040626
  2. RISPERIDONE [Concomitant]

REACTIONS (1)
  - POSTOPERATIVE THROMBOSIS [None]
